FAERS Safety Report 6244976-9 (Version None)
Quarter: 2009Q2

REPORT INFORMATION
  Report Type: 
  Country: None (occurrence: None)
  Receive Date: 20090625
  Receipt Date: 20090611
  Transmission Date: 20091009
  Serious: Yes (Other)
  Sender: FDA-Public Use
  Company Number: JP-JNJFOC-20090608373

PATIENT
  Age: 36 Year
  Sex: Female

DRUGS (4)
  1. GRISEOFULVIN [Suspect]
     Indication: TRICHOPHYTOSIS
     Route: 048
  2. UNSPECIFIED ANTICOAGULANT [Suspect]
     Indication: DRUG USE FOR UNKNOWN INDICATION
     Route: 065
  3. ANTIBIOTICS [Suspect]
     Indication: DRUG USE FOR UNKNOWN INDICATION
     Route: 065
  4. STEROIDS NOS [Suspect]
     Indication: DRUG USE FOR UNKNOWN INDICATION
     Route: 065

REACTIONS (3)
  - DISSEMINATED INTRAVASCULAR COAGULATION [None]
  - ENCEPHALITIS [None]
  - MIXED CONNECTIVE TISSUE DISEASE [None]
